FAERS Safety Report 4789312-X (Version None)
Quarter: 2005Q3

REPORT INFORMATION
  Report Type: 
  Country: None (occurrence: None)
  Receive Date: 20050929
  Receipt Date: 20050823
  Transmission Date: 20060218
  Serious: No
  Sender: FDA-Public Use
  Company Number: 05P-163-0309026-00

PATIENT
  Age: 64 Year
  Sex: Female
  Weight: 69.4003 kg

DRUGS (8)
  1. HUMIRA [Suspect]
     Indication: RHEUMATOID ARTHRITIS
     Dosage: 40 MG, 1 IN 2 WK, SUBCUTANEOUS
     Route: 058
     Dates: start: 20051212, end: 20050501
  2. METHOTREXATE [Concomitant]
  3. FOLIC ACID [Concomitant]
  4. PREDNISONE [Concomitant]
  5. MELOXICAM [Concomitant]
  6. ENALAPRIL [Concomitant]
  7. RISEDRONATE SODIUM [Concomitant]
  8. HYDROXYCHLOROQUINE PHOSPHATE [Concomitant]

REACTIONS (2)
  - ARTHRITIS [None]
  - PAIN IN EXTREMITY [None]
